FAERS Safety Report 8539372-5 (Version None)
Quarter: 2012Q3

REPORT INFORMATION
  Report Type: 
  Country: None (occurrence: None)
  Receive Date: 20120726
  Receipt Date: 20110726
  Transmission Date: 20120928
  Serious: No
  Sender: FDA-Public Use
  Company Number: US-ASTRAZENECA-2011SE44558

PATIENT
  Age: 42 Year
  Sex: Female

DRUGS (2)
  1. SEROQUEL [Suspect]
     Indication: BIPOLAR DISORDER
     Route: 048
     Dates: start: 20040101, end: 20110601
  2. NEXIUM [Concomitant]
     Indication: GASTROOESOPHAGEAL REFLUX DISEASE
     Route: 048
     Dates: start: 20040101, end: 20110601

REACTIONS (6)
  - WITHDRAWAL SYNDROME [None]
  - WEIGHT DECREASED [None]
  - DRUG WITHDRAWAL HEADACHE [None]
  - DRUG DOSE OMISSION [None]
  - TREMOR [None]
  - DYSSTASIA [None]
